FAERS Safety Report 5756807-1 (Version None)
Quarter: 2008Q2

REPORT INFORMATION
  Report Type: 
  Country: None (occurrence: None)
  Receive Date: 20080603
  Receipt Date: 20080527
  Transmission Date: 20081010
  Serious: Yes (Hospitalization)
  Sender: FDA-Public Use
  Company Number: US-AVENTIS-200813274US

PATIENT
  Age: 63 Year
  Sex: Female
  Weight: 112 kg

DRUGS (6)
  1. LANTUS [Suspect]
     Dosage: DOSE: 20 UNITS, INCREASED TO 40 UNITS, THEN INCREASED TO 50 UNITS
     Route: 051
  2. ASPIRIN [Concomitant]
     Dosage: DOSE: UNK
  3. NITROGLYN 2% OINTMENT [Concomitant]
     Dosage: DOSE: UNK
  4. BYETTA [Concomitant]
     Dosage: DOSE: UNK
  5. ACTOS [Concomitant]
     Dosage: DOSE: UNK
  6. AMARYL [Concomitant]
     Dosage: DOSE: UNK

REACTIONS (13)
  - ABDOMINAL PAIN UPPER [None]
  - ARTHROPATHY [None]
  - BLOOD GLUCOSE INCREASED [None]
  - CARDIAC FAILURE [None]
  - DYSPNOEA [None]
  - ERYTHEMA [None]
  - GAIT DISTURBANCE [None]
  - HYPOAESTHESIA [None]
  - MUSCULOSKELETAL STIFFNESS [None]
  - PAIN IN EXTREMITY [None]
  - PRURITUS [None]
  - PRURITUS GENERALISED [None]
  - PULMONARY OEDEMA [None]
